FAERS Safety Report 20179464 (Version 1)
Quarter: 2021Q4

REPORT INFORMATION
  Report Type: Spontaneous
  Country: CH (occurrence: CH)
  Receive Date: 20211214
  Receipt Date: 20211214
  Transmission Date: 20220303
  Serious: Yes (Other)
  Sender: FDA-Public Use
  Company Number: CH-SA-SAC20210226001087

PATIENT
  Age: 8 Year
  Sex: Male
  Weight: 25 kg

DRUGS (5)
  1. ELOCTA [Suspect]
     Active Substance: EFMOROCTOCOG ALFA
     Indication: Haemophilia
     Dosage: 1000 IU/25 KG (40 IU/KG) EVERY 2-3 DAYS
     Route: 042
  2. ELOCTA [Suspect]
     Active Substance: EFMOROCTOCOG ALFA
     Indication: Haemophilia
     Dosage: 1000 IU/25 KG (40 IU/KG) EVERY 2-3 DAYS
     Route: 042
  3. ELOCTA [Suspect]
     Active Substance: EFMOROCTOCOG ALFA
     Indication: Prophylaxis
     Dosage: 1000 IU, QOD
     Route: 042
  4. ELOCTA [Suspect]
     Active Substance: EFMOROCTOCOG ALFA
     Indication: Prophylaxis
     Dosage: 1000 IU, QOD
     Route: 042
  5. ADVATE [Concomitant]
     Active Substance: ANTIHEMOPHILIC FACTOR, HUMAN RECOMBINANT
     Dosage: UNK

REACTIONS (3)
  - Haemarthrosis [Recovered/Resolved]
  - Factor VIII inhibition [Recovered/Resolved]
  - Haematoma [Unknown]
